FAERS Safety Report 6061520-X (Version None)
Quarter: 2009Q1

REPORT INFORMATION
  Report Type: 
  Country: None (occurrence: None)
  Receive Date: 20090202
  Receipt Date: 20090121
  Transmission Date: 20090719
  Serious: Yes (Hospitalization)
  Sender: FDA-Public Use
  Company Number: US-AVENTIS-200910547US

PATIENT

DRUGS (1)
  1. LASIX [Suspect]
     Dosage: DOSE: UNK

REACTIONS (1)
  - ACUTE HEPATIC FAILURE [None]
